FAERS Safety Report 6664787-X (Version None)
Quarter: 2010Q1

REPORT INFORMATION
  Report Type: 
  Country: None (occurrence: None)
  Receive Date: 20100330
  Receipt Date: 20100319
  Transmission Date: 20100710
  Serious: Yes (Other)
  Sender: FDA-Public Use
  Company Number: 2010JP000549

PATIENT
  Age: 42 Year
  Sex: Female
  Weight: 45 kg

DRUGS (9)
  1. PROGRAF [Suspect]
     Dosage: 3MG, UID/QD/ORAL
     Route: 048
     Dates: start: 20090316
  2. PYDOXAL (PYRIDOXAL PHOSPHATE) TABLET [Suspect]
     Dosage: 20 MD, TID, ORAL
     Route: 048
     Dates: start: 20080317, end: 20090710
  3. ISONIAZID [Suspect]
     Dosage: 300 MG, UID/QD, ORAL
     Route: 048
     Dates: start: 20080317, end: 20090710
  4. BAKTAR (SULFAMETHOXAZOLE, TRIMETHOPRIM) TABLET [Suspect]
     Dosage: 1 G, UID/QD, ORAL
     Route: 048
     Dates: start: 20070130, end: 20090710
  5. PREDNISOLONE [Concomitant]
  6. COMELIAN (DILAZEP DIHYDROCHLORIDE) TABLET [Concomitant]
  7. DIOVAN [Concomitant]
  8. FAMOTIDINE [Concomitant]
  9. FOSAMAC (ALENDRONATE SODIUM) TABLET [Concomitant]

REACTIONS (2)
  - BLOOD FIBRINOGEN DECREASED [None]
  - MENORRHAGIA [None]
